FAERS Safety Report 15636447 (Version 1)
Quarter: 2018Q4

REPORT INFORMATION
  Report Type: Spontaneous
  Country: US (occurrence: US)
  Receive Date: 20181120
  Receipt Date: 20181120
  Transmission Date: 20190205
  Serious: No
  Sender: FDA-Public Use
  Company Number: US-BAYER-2018-214737

PATIENT
  Age: 62 Year
  Sex: Male
  Weight: 94.97 kg

DRUGS (9)
  1. EZETIMIBE. [Concomitant]
     Active Substance: EZETIMIBE
  2. ATORVASTATIN [Concomitant]
     Active Substance: ATORVASTATIN
  3. MIRALAX [Suspect]
     Active Substance: POLYETHYLENE GLYCOL 3350
     Indication: GASTROINTESTINAL DISORDER
     Dosage: UNK UNK, QD
     Route: 048
     Dates: start: 201806
  4. LIPITOR [Concomitant]
     Active Substance: ATORVASTATIN CALCIUM
  5. PROBIOTICA [Concomitant]
     Active Substance: PROBIOTICS NOS
  6. LISINOPRIL. [Concomitant]
     Active Substance: LISINOPRIL
  7. MULTIVITAMIN [Concomitant]
     Active Substance: VITAMINS
  8. BAYER LOW DOSE [Concomitant]
     Active Substance: ASPIRIN
  9. UBIQUINOL [Concomitant]
     Active Substance: UBIQUINOL

REACTIONS (4)
  - Product use in unapproved indication [Unknown]
  - Product contamination physical [None]
  - Off label use [Unknown]
  - Poor quality product administered [Unknown]

NARRATIVE: CASE EVENT DATE: 20181017
